FAERS Safety Report 16225626 (Version 2)
Quarter: 2019Q2

REPORT INFORMATION
  Report Type: Spontaneous
  Country: US (occurrence: US)
  Receive Date: 20190422
  Receipt Date: 20190502
  Transmission Date: 20190711
  Serious: No
  Sender: FDA-Public Use
  Company Number: US-009507513-1904USA008520

PATIENT
  Age: 18 Year
  Sex: Female
  Weight: 97.05 kg

DRUGS (2)
  1. IBUPROFEN. [Concomitant]
     Active Substance: IBUPROFEN
  2. NEXPLANON [Suspect]
     Active Substance: ETONOGESTREL
     Indication: CONTRACEPTION
     Dosage: 1 DOSAGE FORM(4 YEARS, LEFT ARM)
     Route: 059
     Dates: start: 20170901

REACTIONS (1)
  - Polymenorrhoea [Not Recovered/Not Resolved]
